FAERS Safety Report 10651495 (Version 1)
Quarter: 2014Q4

REPORT INFORMATION
  Report Type: Spontaneous
  Country: US (occurrence: None)
  Receive Date: 20141212
  Receipt Date: 20141212
  Transmission Date: 20150529
  Serious: Yes (Death, Life-Threatening)
  Sender: FDA-Public Use
  Company Number: None

PATIENT
  Age: 55 Year
  Sex: Female

DRUGS (1)
  1. ISTODAX [Suspect]
     Active Substance: ROMIDEPSIN
     Indication: PERIPHERAL T-CELL LYMPHOMA UNSPECIFIED
     Route: 042

REACTIONS (5)
  - Dyspnoea [None]
  - Sepsis [None]
  - Cardiomyopathy [None]
  - Hyperhidrosis [None]
  - Brain natriuretic peptide increased [None]

NARRATIVE: CASE EVENT DATE: 20141020
